FAERS Safety Report 11124303 (Version 1)
Quarter: 2015Q2

REPORT INFORMATION
  Report Type: Report from Study
  Country: US (occurrence: US)
  Receive Date: 20150520
  Receipt Date: 20150520
  Transmission Date: 20150821
  Serious: Yes (Hospitalization)
  Sender: FDA-Public Use
  Company Number: US-009507513-1505USA007105

PATIENT
  Age: 73 Year
  Sex: Male

DRUGS (2)
  1. CARFILZOMIB [Suspect]
     Active Substance: CARFILZOMIB
     Indication: PLASMA CELL MYELOMA
     Dosage: 139 MG, QW ON DAYS 1, 8 AND 15 OF EVERY 28 DAY CYCLE
     Route: 042
     Dates: start: 20140807, end: 20141126
  2. DECADRON [Suspect]
     Active Substance: DEXAMETHASONE
     Indication: PLASMA CELL MYELOMA
     Dosage: 40 MG, QW ON DAYS 1, 8, 15 AND 22 OF EVERY 28 DAY CYCLE
     Route: 042
     Dates: start: 20140807, end: 20141126

REACTIONS (2)
  - Renal failure [Unknown]
  - Respiratory distress [Unknown]

NARRATIVE: CASE EVENT DATE: 20141128
